FAERS Safety Report 6030604-4 (Version None)
Quarter: 2009Q1

REPORT INFORMATION
  Report Type: 
  Country: None (occurrence: None)
  Receive Date: 20090107
  Receipt Date: 20090105
  Transmission Date: 20090719
  Serious: Yes (Other)
  Sender: FDA-Public Use
  Company Number: US-AMGEN-QUU324357

PATIENT
  Sex: Female
  Weight: 77.2 kg

DRUGS (6)
  1. ENBREL [Suspect]
     Indication: RHEUMATOID ARTHRITIS
     Route: 058
     Dates: start: 20041001, end: 20080801
  2. VYTORIN [Concomitant]
  3. HYZAAR [Concomitant]
  4. METHOTREXATE [Concomitant]
     Dates: start: 19950101, end: 20080801
  5. DARVOCET-N 100 [Concomitant]
  6. FOLIC ACID [Concomitant]

REACTIONS (1)
  - GLIOBLASTOMA [None]
